FAERS Safety Report 24153261 (Version 1)
Quarter: 2024Q3

REPORT INFORMATION
  Report Type: Spontaneous
  Country: US (occurrence: US)
  Receive Date: 20240730
  Receipt Date: 20240730
  Transmission Date: 20241017
  Serious: Yes (Other)
  Sender: MYLAN
  Company Number: US-MYLANLABS-2024M1069895

PATIENT
  Age: 10 Year
  Sex: Female

DRUGS (1)
  1. DEXAMETHASONE [Suspect]
     Active Substance: DEXAMETHASONE
     Indication: Eye inflammation
     Dosage: 2 MM ALIQUOT; INJECTION OF DEXAMETHASONE SUSPENSION
     Route: 031

REACTIONS (2)
  - Iris atrophy [Unknown]
  - Off label use [Unknown]
